FAERS Safety Report 19187262 (Version 3)
Quarter: 2021Q3

REPORT INFORMATION
  Report Type: Spontaneous
  Country: US (occurrence: US)
  Receive Date: 20210428
  Receipt Date: 20210713
  Transmission Date: 20211014
  Serious: No
  Sender: FDA-Public Use
  Company Number: US-SA-2021SA135673

PATIENT
  Sex: Female

DRUGS (1)
  1. ALLEGRA ALLERGY [Suspect]
     Active Substance: FEXOFENADINE HYDROCHLORIDE
     Indication: HYPERSENSITIVITY
     Dosage: DRUG STRUCTURE DOSAGE : 180 MG DRUG INTERVAL DOSAGE : ONCE DAILY AS NEEDED

REACTIONS (2)
  - Therapeutic response decreased [Unknown]
  - Cough [Unknown]
